FAERS Safety Report 13195669 (Version 1)
Quarter: 2017Q1

REPORT INFORMATION
  Report Type: Spontaneous
  Country: GB (occurrence: GB)
  Receive Date: 20170208
  Receipt Date: 20170208
  Transmission Date: 20170428
  Serious: Yes (Other)
  Sender: FDA-Public Use
  Company Number: GB-ACCORD-047898

PATIENT
  Age: 24 Year
  Sex: Female
  Weight: 58 kg

DRUGS (2)
  1. AMITRIPTYLINE [Suspect]
     Active Substance: AMITRIPTYLINE
     Indication: IRRITABLE BOWEL SYNDROME
     Dosage: 10-30 MG
     Route: 048
     Dates: start: 20160129
  2. CERELLE [Concomitant]
     Active Substance: DESOGESTREL

REACTIONS (6)
  - Hormone level abnormal [Not Recovered/Not Resolved]
  - Apathy [Unknown]
  - Off label use [Unknown]
  - Fatigue [Not Recovered/Not Resolved]
  - Mood altered [Unknown]
  - Skin disorder [Unknown]

NARRATIVE: CASE EVENT DATE: 20160201
